FAERS Safety Report 5807262-4 (Version None)
Quarter: 2008Q3

REPORT INFORMATION
  Report Type: 
  Country: None (occurrence: None)
  Receive Date: 20080711
  Receipt Date: 20080704
  Transmission Date: 20090109
  Serious: Yes (Hospitalization, Other)
  Sender: FDA-Public Use
  Company Number: BR-ASTRAZENECA-2008UW07601

PATIENT
  Age: 80 Year
  Sex: Male
  Weight: 63 kg

DRUGS (17)
  1. ZOLADEX [Suspect]
     Indication: PROSTATE CANCER RECURRENT
     Route: 058
     Dates: start: 20080331, end: 20080401
  2. DOXAZOSIN MESYLATE [Concomitant]
     Indication: POLLAKIURIA
     Route: 048
     Dates: start: 20070101
  3. PROPATYLNITRATE [Concomitant]
     Route: 048
     Dates: start: 20061201
  4. CILOSTAZOLE [Concomitant]
     Route: 048
     Dates: start: 20061201
  5. SOMALGIN CARDIO [Concomitant]
     Route: 048
     Dates: start: 20061201
  6. NORIPURUM [Concomitant]
     Indication: ANAEMIA
     Route: 048
     Dates: start: 20070101
  7. PAPAVERINE [Concomitant]
     Route: 048
     Dates: start: 20070101
  8. TORLOS H [Concomitant]
     Dosage: 50/12.5 MG
  9. ANDROCUR [Concomitant]
     Route: 048
     Dates: start: 20080501
  10. OMEPRAZOLE [Concomitant]
     Route: 048
     Dates: start: 20080601
  11. SUSTRATE [Concomitant]
     Route: 048
  12. PRAVASTATINA [Concomitant]
     Route: 048
  13. LASIX [Concomitant]
     Route: 048
     Dates: start: 20080601
  14. VERTIZINE D [Concomitant]
     Route: 048
     Dates: start: 20080201
  15. PASALIX [Concomitant]
     Route: 048
     Dates: start: 20080501
  16. LISADOR [Concomitant]
     Route: 048
     Dates: start: 20080501
  17. DIPIRONA [Concomitant]
     Route: 048
     Dates: start: 20080501

REACTIONS (12)
  - ANAEMIA [None]
  - BLOOD CREATININE INCREASED [None]
  - BLOOD UREA INCREASED [None]
  - DECREASED APPETITE [None]
  - DIZZINESS [None]
  - LABYRINTHITIS [None]
  - METASTASES TO BONE [None]
  - NAUSEA [None]
  - POLLAKIURIA [None]
  - PROSTATIC SPECIFIC ANTIGEN INCREASED [None]
  - RENAL DISORDER [None]
  - URINE OUTPUT DECREASED [None]
